FAERS Safety Report 8990664 (Version 1)
Quarter: 2012Q4

REPORT INFORMATION
  Report Type: 
  Country: CN (occurrence: CN)
  Receive Date: 20121228
  Receipt Date: 20121228
  Transmission Date: 20130627
  Serious: Yes (Other)
  Sender: FDA-Public Use
  Company Number: CN-ROCHE-1174250

PATIENT

DRUGS (7)
  1. MYCOPHENOLATE MOFETIL [Suspect]
     Indication: IMMUNOSUPPRESSION
     Dosage: initial daily dose was 1-1.5g.
     Route: 065
  2. CICLOSPORIN [Suspect]
     Indication: IMMUNOSUPPRESSION
     Dosage: inital daily dose was 7-8mg/kg/d
     Route: 065
  3. PREDNISONE [Suspect]
     Indication: IMMUNOSUPPRESSION
     Dosage: 0.4-0.6mg/kg/d
     Route: 048
  4. PREDNISONE [Suspect]
     Dosage: 5-10mg/d
     Route: 048
  5. TACROLIMUS [Suspect]
     Indication: IMMUNOSUPPRESSION
     Route: 048
  6. METHYLPREDNISOLONE [Concomitant]
     Indication: IMMUNOSUPPRESSION
     Dosage: during operation
     Route: 065
  7. METHYLPREDNISOLONE [Concomitant]
     Dosage: after operation
     Route: 065

REACTIONS (3)
  - Drug-induced liver injury [Unknown]
  - Urinary tract infection [Unknown]
  - Infection [Unknown]
